FAERS Safety Report 15282544 (Version 1)
Quarter: 2018Q3

REPORT INFORMATION
  Report Type: Spontaneous
  Country: GB (occurrence: GB)
  Receive Date: 20180816
  Receipt Date: 20180816
  Transmission Date: 20181010
  Serious: Yes (Other)
  Sender: FDA-Public Use
  Company Number: GB-AXELLIA-001833

PATIENT
  Age: 67 Year
  Sex: Female

DRUGS (1)
  1. VANCOMYCIN [Suspect]
     Active Substance: VANCOMYCIN
     Indication: PRODUCT USED FOR UNKNOWN INDICATION
     Route: 042

REACTIONS (3)
  - Therapeutic drug monitoring analysis not performed [Unknown]
  - Drug level increased [Unknown]
  - Acute kidney injury [Unknown]

NARRATIVE: CASE EVENT DATE: 20171002
